FAERS Safety Report 8620078-9 (Version None)
Quarter: 2012Q3

REPORT INFORMATION
  Report Type: 
  Country: None (occurrence: None)
  Receive Date: 20120824
  Receipt Date: 20120817
  Transmission Date: 20120928
  Serious: Yes (Hospitalization)
  Sender: FDA-Public Use
  Company Number: US-B.I. PHARMACEUTICALS,INC./RIDGEFIELD-2012-BP-19977BP

PATIENT
  Age: 84 Year
  Sex: Male

DRUGS (3)
  1. ASPIRIN [Concomitant]
     Indication: CEREBROVASCULAR ACCIDENT PROPHYLAXIS
     Dosage: 81 MG
     Route: 048
  2. TYLENOL W/ CODEINE [Concomitant]
     Route: 048
  3. AGGRENOX [Suspect]
     Indication: CEREBROVASCULAR ACCIDENT PROPHYLAXIS
     Route: 048
     Dates: start: 20100101

REACTIONS (5)
  - HYPOTENSION [None]
  - AMNESIA [None]
  - LOSS OF CONSCIOUSNESS [None]
  - FALL [None]
  - FEELING ABNORMAL [None]
